FAERS Safety Report 6129528-3 (Version None)
Quarter: 2009Q1

REPORT INFORMATION
  Report Type: 
  Country: None (occurrence: None)
  Receive Date: 20090324
  Receipt Date: 20090316
  Transmission Date: 20090719
  Serious: Yes (Life-Threatening, Hospitalization)
  Sender: FDA-Public Use
  Company Number: FI-ASTRAZENECA-2009SE01157

PATIENT
  Age: 28128 Day
  Sex: Male

DRUGS (4)
  1. PLACEBO [Suspect]
     Indication: PROSTATE CANCER
     Route: 048
  2. DOCETAXEL [Suspect]
     Indication: PROSTATE CANCER
     Dosage: EVERY THREE WEEKS
     Route: 042
  3. ESOMEPRAZOLE [Suspect]
  4. LEUPRORELIN ACETATE [Suspect]

REACTIONS (1)
  - CEREBRAL INFARCTION [None]
